FAERS Safety Report 24697520 (Version 4)
Quarter: 2024Q4

REPORT INFORMATION
  Report Type: Report from Study
  Country: US (occurrence: US)
  Receive Date: 20241204
  Receipt Date: 20241223
  Transmission Date: 20250115
  Serious: Yes (Other)
  Sender: UCB
  Company Number: US-UCBSA-2024062308

PATIENT
  Age: 21 Year
  Sex: Female
  Weight: 34 kg

DRUGS (3)
  1. FINTEPLA [Suspect]
     Active Substance: FENFLURAMINE
     Indication: Lennox-Gastaut syndrome
     Dosage: 1.5 MILLILITER, 2X/DAY (BID)
     Dates: start: 20230831
  2. FINTEPLA [Suspect]
     Active Substance: FENFLURAMINE
     Dosage: 5.25 MILLILITER, 2X/DAY (BID)
     Dates: start: 202311
  3. FINTEPLA [Suspect]
     Active Substance: FENFLURAMINE
     Dosage: 5.3 MILLILITER, 2X/DAY (BID)
     Dates: start: 20231115, end: 20241204

REACTIONS (5)
  - Mitral valve incompetence [Not Recovered/Not Resolved]
  - Mitral valve prolapse [Not Recovered/Not Resolved]
  - Tricuspid valve incompetence [Unknown]
  - Seizure [Unknown]
  - Ejection fraction decreased [Not Recovered/Not Resolved]

NARRATIVE: CASE EVENT DATE: 20240204
